FAERS Safety Report 12437231 (Version 1)
Quarter: 2016Q2

REPORT INFORMATION
  Report Type: Other
  Country: TR (occurrence: TR)
  Receive Date: 20160606
  Receipt Date: 20160606
  Transmission Date: 20160815
  Serious: Yes (Other)
  Sender: FDA-Public Use
  Company Number: TR-HETERO LABS LTD-1053313

PATIENT
  Age: 6 Decade
  Sex: Male

DRUGS (1)
  1. LITHIUM. [Suspect]
     Active Substance: LITHIUM
     Indication: BIPOLAR DISORDER

REACTIONS (1)
  - Congenital cystic kidney disease [Recovered/Resolved]
